FAERS Safety Report 8145132-X (Version None)
Quarter: 2012Q1

REPORT INFORMATION
  Report Type: 
  Country: None (occurrence: None)
  Receive Date: 20120214
  Receipt Date: 20120206
  Transmission Date: 20120608
  Serious: Yes (Other)
  Sender: FDA-Public Use
  Company Number: 1000028098

PATIENT
  Sex: Female

DRUGS (1)
  1. CERVIDIL [Suspect]
     Dosage: (10 MG), VAGINAL
     Route: 067

REACTIONS (4)
  - UTERINE HYPERTONUS [None]
  - PRODUCT QUALITY ISSUE [None]
  - MATERNAL EXPOSURE DURING PREGNANCY [None]
  - FOETAL HEART RATE DECELERATION [None]
